FAERS Safety Report 6013825-6 (Version None)
Quarter: 2008Q4

REPORT INFORMATION
  Report Type: 
  Country: None (occurrence: None)
  Receive Date: 20081219
  Receipt Date: 20081204
  Transmission Date: 20090506
  Serious: Yes (Other)
  Sender: FDA-Public Use
  Company Number: ZA-PFIZER INC-2008154396

PATIENT

DRUGS (1)
  1. ASPAVOR [Suspect]
     Dosage: UNKN UNKN UNKN TDD:UNKN
     Route: 048

REACTIONS (1)
  - RENAL FAILURE [None]
